FAERS Safety Report 4944131-6 (Version None)
Quarter: 2006Q1

REPORT INFORMATION
  Report Type: 
  Country: None (occurrence: None)
  Receive Date: 20060309
  Receipt Date: 20060221
  Transmission Date: 20060701
  Serious: Yes (Other)
  Sender: FDA-Public Use
  Company Number: TRP_0716_2006

PATIENT
  Age: 45 Year
  Sex: Female

DRUGS (5)
  1. RIBASPHERE [Suspect]
     Indication: HEPATITIS C
     Dosage: DF PO
     Route: 048
     Dates: start: 20051214
  2. PEG-INTRON [Suspect]
     Indication: HEPATITIS C
     Dosage: DF SC
     Route: 058
     Dates: start: 20051214
  3. KLONOPIN [Concomitant]
  4. SYNTHROID [Concomitant]
  5. VICODIN [Concomitant]

REACTIONS (8)
  - DYSPHONIA [None]
  - HALLUCINATION [None]
  - INJECTION SITE ERYTHEMA [None]
  - OLIGOMENORRHOEA [None]
  - PRODUCTIVE COUGH [None]
  - RESPIRATORY TRACT INFECTION [None]
  - SPUTUM DISCOLOURED [None]
  - VAGINAL HAEMORRHAGE [None]
